FAERS Safety Report 8562594 (Version 2)
Quarter: 2012Q4

REPORT INFORMATION
  Report Type: Spontaneous
  Country: DE (occurrence: None)
  Receive Date: 20120509
  Receipt Date: 20120905
  Transmission Date: 20130627
  Serious: Yes (Death)
  Sender: FDA-Public Use
  Company Number: EU-2012-10136

PATIENT
  Sex: Male
  Weight: 52 kg

DRUGS (9)
  1. SAMSCA [Suspect]
     Indication: HYPONATRAEMIA
     Dosage: SEE IMAGE
     Route: 048
     Dates: start: 20110109, end: 20110110
  2. SAMSCA [Suspect]
     Indication: SIADH
     Dosage: SEE IMAGE
     Route: 048
     Dates: start: 20110109, end: 20110110
  3. SAMSCA [Suspect]
     Indication: HYPONATRAEMIA
     Dosage: SEE IMAGE
     Route: 048
     Dates: start: 20110112, end: 20110525
  4. SAMSCA [Suspect]
     Indication: SIADH
     Dosage: SEE IMAGE
     Route: 048
     Dates: start: 20110112, end: 20110525
  5. SAMSCA [Suspect]
     Indication: HYPONATRAEMIA
     Dosage: SEE IMAGE
     Route: 048
     Dates: start: 20110525, end: 201203
  6. SAMSCA [Suspect]
     Indication: SIADH
     Dosage: SEE IMAGE
     Route: 048
     Dates: start: 20110525, end: 201203
  7. CLOPIDOGREL [Concomitant]
  8. TAMSULOSIN HYDROCHLORIDE [Concomitant]
  9. AMIODARONE HYDROCHLORIDE [Concomitant]

REACTIONS (1)
  - Death [None]
